FAERS Safety Report 5306280-2 (Version None)
Quarter: 2007Q2

REPORT INFORMATION
  Report Type: 
  Country: None (occurrence: None)
  Receive Date: 20070424
  Receipt Date: 20070312
  Transmission Date: 20071010
  Serious: Yes (Hospitalization)
  Sender: FDA-Public Use
  Company Number: US-SANOFI-SYNTHELABO-A03200702232

PATIENT
  Sex: Male

DRUGS (7)
  1. NEURONTIN [Concomitant]
     Dosage: UNK
     Route: 065
  2. PRILOSEC [Concomitant]
     Dosage: UNK
     Route: 065
  3. PAIN MEDICATIONS [Concomitant]
     Dosage: UNK
     Route: 065
  4. ANTIDEPRESSANTS [Concomitant]
     Dosage: UNK
     Route: 065
  5. AMBIEN [Suspect]
     Indication: INSOMNIA
     Route: 048
     Dates: start: 20060101, end: 20070215
  6. AMBIEN [Suspect]
     Route: 048
     Dates: start: 20050101, end: 20060101
  7. ALCOHOL [Concomitant]
     Dosage: UNK
     Route: 048

REACTIONS (8)
  - ABNORMAL BEHAVIOUR [None]
  - AMNESIA [None]
  - DRUG ABUSER [None]
  - EATING DISORDER [None]
  - HEADACHE [None]
  - LOSS OF CONSCIOUSNESS [None]
  - SLEEP WALKING [None]
  - VERBAL ABUSE [None]
